FAERS Safety Report 20520822 (Version 2)
Quarter: 2022Q1

REPORT INFORMATION
  Report Type: Spontaneous
  Country: US (occurrence: US)
  Receive Date: 20220225
  Receipt Date: 20220322
  Transmission Date: 20220423
  Serious: No
  Sender: FDA-Public Use
  Company Number: US-PFIZER INC-202200321964

PATIENT
  Age: 47 Year
  Sex: Male
  Weight: 131.54 kg

DRUGS (1)
  1. PAXLOVID [Suspect]
     Active Substance: NIRMATRELVIR\RITONAVIR
     Indication: COVID-19
     Dosage: 3 DF, 2X/DAY (3 TABLETS (2 PINK AND ONE WHITE) TAKING THEM TWICE A DAY IN 12 HOURS)
     Dates: start: 20220219, end: 20220223

REACTIONS (2)
  - Epistaxis [Not Recovered/Not Resolved]
  - Dizziness [Not Recovered/Not Resolved]

NARRATIVE: CASE EVENT DATE: 20220201
